FAERS Safety Report 12519866 (Version 1)
Quarter: 2016Q2

REPORT INFORMATION
  Report Type: Spontaneous
  Country: US (occurrence: US)
  Receive Date: 20160630
  Receipt Date: 20160630
  Transmission Date: 20160815
  Serious: Yes (Hospitalization)
  Sender: FDA-Public Use
  Company Number: US-SA-2016SA117706

PATIENT
  Age: 73 Year
  Sex: Female

DRUGS (2)
  1. SOLOSTAR [Concomitant]
     Active Substance: DEVICE
     Indication: TYPE 2 DIABETES MELLITUS
     Dosage: TREATMENT START DATE: MORE THAN 1 YEAR AGO
  2. LANTUS SOLOSTAR [Suspect]
     Active Substance: INSULIN GLARGINE
     Indication: TYPE 2 DIABETES MELLITUS
     Dosage: SLIDING SCALE
     Route: 065

REACTIONS (3)
  - Incorrect product storage [Unknown]
  - Pyrexia [Unknown]
  - Ammonia increased [Unknown]
